FAERS Safety Report 7754780-8 (Version None)
Quarter: 2011Q3

REPORT INFORMATION
  Report Type: 
  Country: None (occurrence: None)
  Receive Date: 20110916
  Receipt Date: 20110908
  Transmission Date: 20111222
  Serious: Yes (Hospitalization)
  Sender: FDA-Public Use
  Company Number: US-BIOGENIDEC-2011BI033012

PATIENT
  Age: 32 Year
  Sex: Female

DRUGS (2)
  1. TYSABRI [Suspect]
     Indication: MULTIPLE SCLEROSIS
     Route: 042
     Dates: start: 20080620, end: 20110714
  2. TYSABRI [Suspect]
     Route: 042
     Dates: start: 20070328, end: 20080221

REACTIONS (3)
  - PSYCHOSOMATIC DISEASE [None]
  - NEUROMYELITIS OPTICA [None]
  - MULTIPLE SCLEROSIS [None]
